FAERS Safety Report 7492087-7 (Version None)
Quarter: 2011Q2

REPORT INFORMATION
  Report Type: 
  Country: None (occurrence: None)
  Receive Date: 20110519
  Receipt Date: 20110507
  Transmission Date: 20111010
  Serious: Yes (Death, Other)
  Sender: FDA-Public Use
  Company Number: DE-UCBSA-031875

PATIENT
  Age: 10 Year
  Sex: Female

DRUGS (8)
  1. LACOSAMIDE [Suspect]
     Dosage: UPTITRATION: 6MG/KG BODY WEIGHT
     Dates: start: 20090101
  2. LEVETIRACETAM [Concomitant]
  3. PHENOBARBITAL TAB [Concomitant]
  4. DORMICUM [Concomitant]
  5. LACOSAMIDE [Suspect]
     Dosage: FINAL DOSE
  6. DORMICUM [Concomitant]
     Dosage: INTERMITTENT ADMINISTRATION
  7. LACOSAMIDE [Suspect]
     Indication: STATUS EPILEPTICUS
     Dosage: 3.3MG/KD/D
     Route: 042
  8. CLONAZEPAM [Concomitant]

REACTIONS (2)
  - SEDATION [None]
  - STATUS EPILEPTICUS [None]
